FAERS Safety Report 9348710 (Version 1)
Quarter: 2013Q2

REPORT INFORMATION
  Report Type: Spontaneous
  Country: US (occurrence: US)
  Receive Date: 20130614
  Receipt Date: 20130614
  Transmission Date: 20140414
  Serious: No
  Sender: FDA-Public Use
  Company Number: US-GLAXOSMITHKLINE-A0975975A

PATIENT
  Age: 27 Year
  Sex: Female

DRUGS (2)
  1. TREXIMET [Suspect]
     Indication: HEADACHE
     Dosage: 1TAB SINGLE DOSE
     Route: 048
     Dates: start: 20120501
  2. TYLENOL [Concomitant]

REACTIONS (3)
  - Muscle tightness [Not Recovered/Not Resolved]
  - Musculoskeletal discomfort [Unknown]
  - Exposure during pregnancy [Unknown]
